FAERS Safety Report 5728491-4 (Version None)
Quarter: 2008Q2

REPORT INFORMATION
  Report Type: 
  Country: None (occurrence: None)
  Receive Date: 20080506
  Receipt Date: 20080425
  Transmission Date: 20081010
  Serious: Yes (Other)
  Sender: FDA-Public Use
  Company Number: US-ROCHE-554895

PATIENT
  Sex: Male
  Weight: 61.1 kg

DRUGS (2)
  1. ACCUTANE [Suspect]
     Indication: ACNE
     Route: 065
     Dates: start: 20080101, end: 20080201
  2. ZYRTEC [Concomitant]

REACTIONS (3)
  - ARTHRALGIA [None]
  - MAJOR DEPRESSION [None]
  - SUICIDAL IDEATION [None]
